FAERS Safety Report 9781216 (Version 2)
Quarter: 2014Q1

REPORT INFORMATION
  Report Type: Spontaneous
  Country: US (occurrence: US)
  Receive Date: 20131224
  Receipt Date: 20140128
  Transmission Date: 20141002
  Serious: Yes (Hospitalization)
  Sender: FDA-Public Use
  Company Number: US-009507513-1312USA010583

PATIENT
  Age: 46 Year
  Sex: Female

DRUGS (5)
  1. ISENTRESS [Suspect]
     Indication: ACQUIRED IMMUNODEFICIENCY SYNDROME
     Route: 048
  2. ZIDOVUDINE [Suspect]
     Indication: ACQUIRED IMMUNODEFICIENCY SYNDROME
  3. LAMIVUDINE [Suspect]
     Indication: ACQUIRED IMMUNODEFICIENCY SYNDROME
  4. ATAZANAVIR [Suspect]
     Indication: ACQUIRED IMMUNODEFICIENCY SYNDROME
  5. RITONAVIR [Suspect]
     Indication: ACQUIRED IMMUNODEFICIENCY SYNDROME

REACTIONS (2)
  - Silicon granuloma [Unknown]
  - Immune reconstitution inflammatory syndrome [Unknown]
